FAERS Safety Report 7526473-3 (Version None)
Quarter: 2011Q2

REPORT INFORMATION
  Report Type: 
  Country: None (occurrence: None)
  Receive Date: 20110606
  Receipt Date: 20110526
  Transmission Date: 20111010
  Serious: Yes (Hospitalization)
  Sender: FDA-Public Use
  Company Number: JP-ASTRAZENECA-2011SE32959

PATIENT
  Age: 50 Year
  Sex: Male

DRUGS (1)
  1. SYMBICORT [Suspect]
     Dosage: DOSE UNKNOWN
     Route: 055

REACTIONS (2)
  - VASOSPASM [None]
  - CARDIAC FAILURE [None]
